FAERS Safety Report 18849755 (Version 1)
Quarter: 2021Q1

REPORT INFORMATION
  Report Type: Spontaneous
  Country: CN (occurrence: CN)
  Receive Date: 20210205
  Receipt Date: 20210205
  Transmission Date: 20210420
  Serious: Yes (Other)
  Sender: FDA-Public Use
  Company Number: CN-EMD SERONO-9215751

PATIENT
  Age: 70 Year
  Sex: Female

DRUGS (4)
  1. GLUCOPHAGE [Suspect]
     Active Substance: METFORMIN HYDROCHLORIDE
     Dosage: OLD FORMULATION
     Route: 048
     Dates: start: 202012
  2. GLUCOBAY [Suspect]
     Active Substance: ACARBOSE
     Indication: PRODUCT USED FOR UNKNOWN INDICATION
  3. GLUCOPHAGE [Suspect]
     Active Substance: METFORMIN HYDROCHLORIDE
     Indication: PRODUCT USED FOR UNKNOWN INDICATION
     Dosage: OLD FORMULATION
     Route: 048
  4. GLUCOPHAGE [Suspect]
     Active Substance: METFORMIN HYDROCHLORIDE
     Dosage: NEW FORMULATION
     Route: 048
     Dates: end: 202012

REACTIONS (3)
  - Proctalgia [Recovered/Resolved]
  - Product packaging issue [Unknown]
  - Gastrointestinal oedema [Recovered/Resolved]

NARRATIVE: CASE EVENT DATE: 202012
